FAERS Safety Report 10219513 (Version 2)
Quarter: 2014Q3

REPORT INFORMATION
  Report Type: Report from Study
  Country: US (occurrence: US)
  Receive Date: 20140605
  Receipt Date: 20140818
  Transmission Date: 20150326
  Serious: Yes (Other)
  Sender: FDA-Public Use
  Company Number: US-BRISTOL-MYERS SQUIBB COMPANY-20860326

PATIENT
  Age: 73 Year
  Sex: Female

DRUGS (10)
  1. SYMBICORT [Concomitant]
     Active Substance: BUDESONIDE\FORMOTEROL FUMARATE DIHYDRATE
  2. MAGNESIUM OXIDE. [Concomitant]
     Active Substance: MAGNESIUM OXIDE
  3. CLINDAMYCIN [Concomitant]
     Active Substance: CLINDAMYCIN\CLINDAMYCIN PHOSPHATE
  4. LOMOTIL [Concomitant]
     Active Substance: ATROPINE SULFATE\DIPHENOXYLATE HYDROCHLORIDE
  5. SPIRIVA [Concomitant]
     Active Substance: TIOTROPIUM BROMIDE MONOHYDRATE
  6. SYNTHROID [Concomitant]
     Active Substance: LEVOTHYROXINE SODIUM
  7. LOVENOX [Concomitant]
     Active Substance: ENOXAPARIN SODIUM
  8. LYRICA [Concomitant]
     Active Substance: PREGABALIN
  9. ERBITUX [Suspect]
     Active Substance: CETUXIMAB
     Indication: COLON CANCER
     Route: 042
     Dates: start: 201404
  10. IRINOTECAN [Concomitant]
     Active Substance: IRINOTECAN

REACTIONS (9)
  - Dry skin [Unknown]
  - Pruritus [Unknown]
  - Nail disorder [Unknown]
  - Skin abrasion [Unknown]
  - Neuropathy peripheral [Unknown]
  - Dry eye [Unknown]
  - Thrombosis [Unknown]
  - Poor peripheral circulation [Unknown]
  - Skin exfoliation [Unknown]
